FAERS Safety Report 9727412 (Version 1)
Quarter: 2013Q4

REPORT INFORMATION
  Report Type: Spontaneous
  Country: US (occurrence: US)
  Receive Date: 20131203
  Receipt Date: 20131203
  Transmission Date: 20140711
  Serious: No
  Sender: FDA-Public Use
  Company Number: US-BAYER-2013-142871

PATIENT
  Age: 19 Year
  Sex: Female

DRUGS (2)
  1. BEYAZ [Suspect]
     Indication: ACNE
     Route: 048
  2. ACCUTANE [Concomitant]

REACTIONS (1)
  - Rash [None]
